FAERS Safety Report 5473859-7 (Version None)
Quarter: 2007Q4

REPORT INFORMATION
  Report Type: 
  Country: None (occurrence: None)
  Receive Date: 20071001
  Receipt Date: 20070919
  Transmission Date: 20080405
  Serious: Yes (Death, Life-Threatening, Hospitalization)
  Sender: FDA-Public Use
  Company Number: BR-PFIZER INC-2007078889

PATIENT
  Sex: Male

DRUGS (4)
  1. REVATIO [Suspect]
     Indication: PULMONARY HYPERTENSION
     Route: 048
  2. ALL OTHER THERAPEUTIC PRODUCTS [Concomitant]
  3. MONTELUKAST SODIUM [Concomitant]
     Route: 048
  4. OMEPRAZOLE [Concomitant]

REACTIONS (2)
  - DEATH [None]
  - PULMONARY HYPERTENSION [None]
